FAERS Safety Report 6665702-5 (Version None)
Quarter: 2010Q2

REPORT INFORMATION
  Report Type: 
  Country: None (occurrence: None)
  Receive Date: 20100402
  Receipt Date: 20100322
  Transmission Date: 20101027
  Serious: Yes (Other)
  Sender: FDA-Public Use
  Company Number: US-RB-027388-09

PATIENT
  Sex: Female

DRUGS (1)
  1. SUBOXONE [Suspect]
     Dosage: UNKNOWN DOSING DETIALS
     Route: 065

REACTIONS (2)
  - DRUG EXPOSURE DURING PREGNANCY [None]
  - SELECTIVE ABORTION [None]
